FAERS Safety Report 5598288-7 (Version None)
Quarter: 2008Q1

REPORT INFORMATION
  Report Type: 
  Country: None (occurrence: None)
  Receive Date: 20080122
  Receipt Date: 20080111
  Transmission Date: 20080703
  Serious: Yes (Hospitalization)
  Sender: FDA-Public Use
  Company Number: FR-AVENTIS-200810135FR

PATIENT
  Age: 80 Year
  Sex: Female

DRUGS (11)
  1. PROFENID [Suspect]
     Indication: PAIN
     Route: 042
     Dates: start: 20071025, end: 20071027
  2. LOVENOX [Suspect]
     Route: 058
     Dates: start: 20071024, end: 20071030
  3. PERFALGAN [Concomitant]
     Indication: PAIN
     Route: 042
     Dates: start: 20071024
  4. DI-ANTALVIC                        /00220901/ [Concomitant]
     Indication: PAIN
     Route: 048
     Dates: start: 20071027, end: 20071030
  5. ORBENINE [Concomitant]
     Route: 048
     Dates: start: 20071025, end: 20071026
  6. VENOFER [Concomitant]
     Dates: start: 20071026
  7. COAPROVEL [Concomitant]
  8. ACEBUTOLOL [Concomitant]
  9. ALPRESS [Concomitant]
  10. FENOFIBRATE [Concomitant]
  11. ICAZ [Concomitant]

REACTIONS (2)
  - GASTRIC ULCER [None]
  - GASTROINTESTINAL HAEMORRHAGE [None]
